FAERS Safety Report 7554099-4 (Version None)
Quarter: 2011Q2

REPORT INFORMATION
  Report Type: 
  Country: None (occurrence: None)
  Receive Date: 20110617
  Receipt Date: 20110609
  Transmission Date: 20111010
  Serious: Yes (Other)
  Sender: FDA-Public Use
  Company Number: CA-MILLENNIUM PHARMACEUTICALS, INC.-2011-02278

PATIENT

DRUGS (3)
  1. DEXAMETHASONE [Concomitant]
     Indication: MULTIPLE MYELOMA
     Dosage: 40 MG, UNK
     Dates: start: 20110214, end: 20110513
  2. VELCADE [Suspect]
     Indication: MULTIPLE MYELOMA
     Dosage: 2.9 MG, CYCLIC
     Dates: start: 20110214, end: 20110513
  3. CYCLOPHOSPHAMIDE [Concomitant]
     Indication: MULTIPLE MYELOMA
     Dosage: 550 MG, UNK
     Route: 048
     Dates: start: 20110214, end: 20110513

REACTIONS (1)
  - ATRIAL FIBRILLATION [None]
